FAERS Safety Report 12047344 (Version 2)
Quarter: 2016Q1

REPORT INFORMATION
  Report Type: Spontaneous
  Country: US (occurrence: US)
  Receive Date: 20160208
  Receipt Date: 20160212
  Transmission Date: 20160526
  Serious: No
  Sender: FDA-Public Use
  Company Number: US-BAYER-2016-020768

PATIENT
  Age: 56 Year
  Sex: Male

DRUGS (1)
  1. CORICIDIN HBP COLD AND FLU [Suspect]
     Active Substance: ACETAMINOPHEN\CHLORPHENIRAMINE MALEATE
     Indication: NASOPHARYNGITIS
     Dosage: 2 DF, BID
     Route: 048
     Dates: start: 20160131, end: 20160131

REACTIONS (2)
  - Sleep disorder [None]
  - Somnolence [None]

NARRATIVE: CASE EVENT DATE: 20160131
